FAERS Safety Report 5585194-7 (Version None)
Quarter: 2008Q1

REPORT INFORMATION
  Report Type: 
  Country: None (occurrence: None)
  Receive Date: 20080109
  Receipt Date: 20080103
  Transmission Date: 20080703
  Serious: Yes (Other)
  Sender: FDA-Public Use
  Company Number: PHFR2008GB00455

PATIENT
  Sex: Female

DRUGS (1)
  1. LIORESAL [Suspect]
     Route: 048

REACTIONS (1)
  - DYSPHAGIA [None]
